FAERS Safety Report 8777387 (Version 2)
Quarter: 2012Q4

REPORT INFORMATION
  Report Type: Report from Study
  Country: US (occurrence: US)
  Receive Date: 20120911
  Receipt Date: 20121002
  Transmission Date: 20130627
  Serious: Yes (Hospitalization)
  Sender: FDA-Public Use
  Company Number: US-JUTA-2012-15175

PATIENT
  Age: 63 Year
  Sex: Female

DRUGS (17)
  1. FUROSEMIDE (WATSON LABORATORIES) [Suspect]
     Indication: CARDIAC FAILURE CHRONIC
     Dosage: 40 Milligram 1 day
     Route: 048
  2. METFORMIN HYDROCHLORIDE (WATSON LABORATORIES) [Suspect]
     Indication: DIABETES MELLITUS
     Dosage: 850 mg, 2/1 day
     Route: 048
  3. LOSARTAN POTASSIUM (WATSON LABORATORIES) [Suspect]
     Indication: CARDIAC FAILURE CHRONIC
     Dosage: 100 Milligram, 1 day
     Route: 048
  4. SAXAGLIPTIN [Suspect]
     Indication: TYPE 2 DIABETES MELLITUS
     Dosage: 5 Milligram, 1 day
     Route: 048
     Dates: start: 20110114
  5. HUMALOG [Suspect]
     Indication: DIABETES MELLITUS
     Dosage: 30 Micromole
     Route: 058
  6. LEVEMIR [Suspect]
     Indication: DIABETES MELLITUS
     Dosage: 1 Dosage Form 1 Day
     Route: 058
  7. LANTUS [Suspect]
     Indication: DIABETES MELLITUS
     Dosage: 40 International Unit
     Route: 065
  8. PLACEBO [Suspect]
     Indication: TYPE 2 DIABETES MELLITUS
     Dosage: 1 Day
     Route: 048
     Dates: start: 20110114
  9. ASPIRIN [Suspect]
     Indication: CARDIOVASCULAR DISORDER
     Dosage: 81 Milligram 1 Day
     Route: 048
  10. SPIRONOLACTONE [Concomitant]
     Indication: PRODUCT USED FOR UNKNOWN INDICATION
     Dosage: UNK
     Route: 065
  11. AMLODIPINE [Concomitant]
     Indication: PRODUCT USED FOR UNKNOWN INDICATION
     Dosage: UNK
     Route: 065
  12. FLUVOXAMINE [Concomitant]
     Indication: PRODUCT USED FOR UNKNOWN INDICATION
     Dosage: UNK
     Route: 065
  13. CARVEDILOL [Concomitant]
     Indication: PRODUCT USED FOR UNKNOWN INDICATION
     Dosage: UNK
     Route: 065
  14. GABAPENTIN [Concomitant]
     Indication: PRODUCT USED FOR UNKNOWN INDICATION
     Dosage: UNK
     Route: 065
  15. PRAVACHOL [Concomitant]
     Indication: PRODUCT USED FOR UNKNOWN INDICATION
     Dosage: UNK
     Route: 065
  16. RANITIDINE [Concomitant]
     Indication: PRODUCT USED FOR UNKNOWN INDICATION
     Dosage: UNK
     Route: 065
  17. MELOXICAM [Concomitant]
     Indication: PRODUCT USED FOR UNKNOWN INDICATION
     Dosage: UNK
     Route: 065

REACTIONS (2)
  - Diabetic ketoacidosis [Recovered/Resolved]
  - Renal impairment [Recovered/Resolved]
